FAERS Safety Report 10101347 (Version 1)
Quarter: 2014Q2

REPORT INFORMATION
  Report Type: Spontaneous
  Country: US (occurrence: US)
  Receive Date: 20140424
  Receipt Date: 20140424
  Transmission Date: 20141212
  Serious: No
  Sender: FDA-Public Use
  Company Number: US-PFIZER INC-2014113081

PATIENT
  Age: 55 Year
  Sex: Female
  Weight: 95.24 kg

DRUGS (9)
  1. LYRICA [Suspect]
     Indication: LYME DISEASE
     Dosage: 300 MG, 2X/DAY
  2. LYRICA [Suspect]
     Indication: NEUROPATHY PERIPHERAL
  3. LYRICA [Suspect]
     Indication: FIBROMYALGIA
  4. LYRICA [Suspect]
     Indication: MYOFASCIAL PAIN SYNDROME
  5. FENTANYL [Concomitant]
     Indication: PAIN
     Dosage: UNK
  6. HYDROCODONE [Concomitant]
     Dosage: 15 MG, 3X/DAY
  7. KLONOPIN [Concomitant]
     Dosage: UNK
  8. AMBIEN [Concomitant]
     Dosage: UNK
  9. TIZANIDINE [Concomitant]
     Dosage: UNK

REACTIONS (4)
  - Dysarthria [Unknown]
  - Hypersomnia [Unknown]
  - Insomnia [Unknown]
  - Memory impairment [Unknown]
